FAERS Safety Report 11792759 (Version 2)
Quarter: 2015Q4

REPORT INFORMATION
  Report Type: Report from Study
  Country: US (occurrence: US)
  Receive Date: 20151202
  Receipt Date: 20151210
  Transmission Date: 20160305
  Serious: Yes (Hospitalization, Other)
  Sender: FDA-Public Use
  Company Number: US-ALEXION PHARMACEUTICALS INC-A201504758

PATIENT
  Sex: Male

DRUGS (1)
  1. SOLIRIS [Suspect]
     Active Substance: ECULIZUMAB
     Indication: HAEMOLYTIC URAEMIC SYNDROME
     Dosage: 900 MG, UNK
     Route: 042
     Dates: start: 20151122

REACTIONS (5)
  - Sepsis [Unknown]
  - Cardiac disorder [Not Recovered/Not Resolved]
  - Unresponsive to stimuli [Unknown]
  - Renal failure [Unknown]
  - Nervous system disorder [Not Recovered/Not Resolved]

NARRATIVE: CASE EVENT DATE: 201511
